FAERS Safety Report 11146373 (Version 1)
Quarter: 2015Q2

REPORT INFORMATION
  Report Type: Spontaneous
  Country: GB (occurrence: None)
  Receive Date: 20150526
  Receipt Date: 20150526
  Transmission Date: 20150821
  Serious: Yes (Hospitalization, Other)
  Sender: FDA-Public Use
  Company Number: GB-DEXPHARM-20150326

PATIENT
  Age: 67 Year
  Sex: Female

DRUGS (6)
  1. BENDROFLUMETHIAZIDE [Suspect]
     Active Substance: BENDROFLUMETHIAZIDE
     Indication: GASTROINTESTINAL DISORDER
     Dosage: ONCE DAILY 20 MG REGULAR DOSE, INCREASED TO TWICE DAILY FOR HELICOBACTER ERADICATION
  2. BENDROFLUMETHIAZIDE [Suspect]
     Active Substance: BENDROFLUMETHIAZIDE
     Dosage: ONCE DAILY 20 MG REGULAR DOSE, INCREASED TO TWICE DAILY FOR HELICOBACTER ERADICATION
  3. SERTRALINE [Suspect]
     Active Substance: SERTRALINE HYDROCHLORIDE
     Indication: DEPRESSION
  4. TEMAZEPAM. [Concomitant]
     Active Substance: TEMAZEPAM
  5. OMEPRAZOLE. [Suspect]
     Active Substance: OMEPRAZOLE
     Indication: HELICOBACTER INFECTION
  6. OMEPRAZOLE. [Suspect]
     Active Substance: OMEPRAZOLE
     Indication: GASTROINTESTINAL DISORDER

REACTIONS (4)
  - Hyponatraemia [None]
  - Urinary tract infection [None]
  - Acute psychosis [None]
  - Seizure [None]

NARRATIVE: CASE EVENT DATE: 20140310
